FAERS Safety Report 13837098 (Version 1)
Quarter: 2017Q3

REPORT INFORMATION
  Report Type: Spontaneous
  Country: US (occurrence: US)
  Receive Date: 20170804
  Receipt Date: 20170804
  Transmission Date: 20171127
  Serious: No
  Sender: FDA-Public Use
  Company Number: US-ROCHE-731733

PATIENT
  Age: 81 Year

DRUGS (1)
  1. BONIVA [Suspect]
     Active Substance: IBANDRONATE SODIUM
     Indication: PRODUCT USED FOR UNKNOWN INDICATION
     Dosage: FORM:PILL
     Route: 065

REACTIONS (4)
  - Tremor [Unknown]
  - Product quality issue [Unknown]
  - Product packaging issue [Unknown]
  - Fine motor skill dysfunction [Unknown]
